FAERS Safety Report 5125702-3 (Version None)
Quarter: 2006Q4

REPORT INFORMATION
  Report Type: 
  Country: None (occurrence: None)
  Receive Date: 20061012
  Receipt Date: 20061003
  Transmission Date: 20070319
  Serious: Yes (Hospitalization)
  Sender: FDA-Public Use
  Company Number: US-JNJFOC-20061001330

PATIENT
  Sex: Female
  Weight: 81.65 kg

DRUGS (7)
  1. DURAGESIC-100 [Suspect]
     Indication: PAIN
     Route: 062
  2. ABILIFY [Concomitant]
     Indication: DEPRESSION
     Route: 048
  3. ALPRAZOLAM [Concomitant]
     Indication: PANIC DISORDER
     Route: 048
  4. ALPRAZOLAM [Concomitant]
     Indication: ANXIETY
     Route: 048
  5. WELLBUTRIN [Concomitant]
     Indication: ANXIETY
     Route: 048
  6. WELLBUTRIN [Concomitant]
     Indication: DEPRESSION
     Route: 048
  7. CYMBALTA [Concomitant]
     Indication: DEPRESSION
     Route: 048

REACTIONS (4)
  - DEPRESSION [None]
  - FEELING ABNORMAL [None]
  - PAIN [None]
  - SUICIDE ATTEMPT [None]
